FAERS Safety Report 4867351-8 (Version None)
Quarter: 2005Q4

REPORT INFORMATION
  Report Type: 
  Country: None (occurrence: None)
  Receive Date: 20051228
  Receipt Date: 20051220
  Transmission Date: 20060501
  Serious: Yes (Hospitalization)
  Sender: FDA-Public Use
  Company Number: CA-AMGEN-KDL161716

PATIENT
  Sex: Female
  Weight: 80 kg

DRUGS (6)
  1. ENBREL [Suspect]
     Indication: RHEUMATOID ARTHRITIS
     Route: 058
     Dates: start: 20050612, end: 20051216
  2. HUMULIN N [Concomitant]
     Dates: start: 20030101
  3. DILAUDID [Concomitant]
     Dates: start: 20040101
  4. DOMPERIDONE [Concomitant]
     Dates: start: 20050501
  5. MIRTAZAPINE [Concomitant]
     Dates: start: 20050601
  6. TRIAZOLAM [Concomitant]
     Dates: start: 20040401

REACTIONS (5)
  - ELECTROLYTE IMBALANCE [None]
  - GASTROINTESTINAL DISORDER [None]
  - NAUSEA [None]
  - PYREXIA [None]
  - VOMITING [None]
